FAERS Safety Report 5782920-9 (Version None)
Quarter: 2008Q2

REPORT INFORMATION
  Report Type: 
  Country: None (occurrence: None)
  Receive Date: 20080624
  Receipt Date: 20080617
  Transmission Date: 20081010
  Serious: Yes (Death, Hospitalization, Other)
  Sender: FDA-Public Use
  Company Number: US-MERCK-0801USA05459

PATIENT
  Age: 76 Year
  Sex: Female

DRUGS (1)
  1. FOSAMAX [Suspect]
     Indication: OSTEOPOROSIS
     Route: 048
     Dates: start: 20000701, end: 20040101

REACTIONS (5)
  - DEATH [None]
  - DEPRESSION [None]
  - JAW DISORDER [None]
  - LUNG DISORDER [None]
  - OSTEONECROSIS [None]
